FAERS Safety Report 10175617 (Version 2)
Quarter: 2014Q2

REPORT INFORMATION
  Report Type: Report from Study
  Country: US (occurrence: US)
  Receive Date: 20140516
  Receipt Date: 20140530
  Transmission Date: 20141212
  Serious: Yes (Other)
  Sender: FDA-Public Use
  Company Number: US-BIOGENIDEC-2014BI041701

PATIENT
  Age: 54 Year
  Sex: Female
  Weight: 63 kg

DRUGS (11)
  1. TYSABRI [Suspect]
     Indication: MULTIPLE SCLEROSIS
     Route: 042
     Dates: start: 20070524, end: 20140213
  2. ASPIRIN [Concomitant]
     Route: 048
  3. BIOTIN [Concomitant]
     Route: 048
  4. EVISTA [Concomitant]
     Route: 048
     Dates: start: 20131119
  5. FLUVIRIN [Concomitant]
     Route: 030
  6. REMERON [Concomitant]
     Route: 048
     Dates: start: 20140430
  7. SYNTHROID [Concomitant]
     Route: 048
     Dates: start: 20131219
  8. SYNTHROID [Concomitant]
     Route: 048
     Dates: start: 20140321
  9. ZOFRAN [Concomitant]
     Route: 048
     Dates: start: 20140330
  10. VALTREX [Concomitant]
     Indication: ORAL HERPES
  11. VALTREX [Concomitant]
     Indication: ORAL HERPES

REACTIONS (1)
  - Progressive multifocal leukoencephalopathy [Not Recovered/Not Resolved]
